FAERS Safety Report 24702016 (Version 1)
Quarter: 2024Q4

REPORT INFORMATION
  Report Type: Report from Study
  Country: CO (occurrence: CO)
  Receive Date: 20241205
  Receipt Date: 20241205
  Transmission Date: 20250114
  Serious: Yes (Other)
  Sender: ROCHE
  Company Number: CO-002147023-NVSC2023CO125937

PATIENT
  Age: 65 Year
  Sex: Female
  Weight: 50 kg

DRUGS (2)
  1. XOLAIR [Suspect]
     Active Substance: OMALIZUMAB
     Indication: Asthma
     Route: 058
     Dates: start: 20171114
  2. XOLAIR [Suspect]
     Active Substance: OMALIZUMAB
     Dosage: UNK (LAST APPLICATION DATE)
     Route: 065
     Dates: start: 20240607

REACTIONS (2)
  - Asthmatic crisis [Unknown]
  - Blood pressure fluctuation [Unknown]
